FAERS Safety Report 4865354-0 (Version None)
Quarter: 2005Q4

REPORT INFORMATION
  Report Type: 
  Country: None (occurrence: None)
  Receive Date: 20051223
  Receipt Date: 20051216
  Transmission Date: 20060501
  Serious: Yes (Other)
  Sender: FDA-Public Use
  Company Number: CH-ABBOTT-05P-151-0319971-00

PATIENT
  Age: 62 Year
  Sex: Male

DRUGS (5)
  1. KLACID I.V. [Suspect]
     Indication: LOWER RESPIRATORY TRACT INFECTION
     Route: 042
     Dates: start: 20050727, end: 20050801
  2. SODIUM BICARBONATE [Suspect]
     Indication: DRUG USE FOR UNKNOWN INDICATION
     Route: 042
     Dates: start: 20050728
  3. ALIZAPRIDE HYDROCHLORIDE [Suspect]
     Indication: NAUSEA
     Route: 042
     Dates: start: 20050728
  4. ALIZAPRIDE HYDROCHLORIDE [Suspect]
     Indication: VOMITING
  5. POTASSIUM CHLORIDE [Concomitant]
     Indication: DRUG USE FOR UNKNOWN INDICATION
     Route: 042

REACTIONS (3)
  - MEDICAL DEVICE COMPLICATION [None]
  - MEDICATION ERROR [None]
  - PROCEDURAL SITE REACTION [None]
